FAERS Safety Report 25108286 (Version 1)
Quarter: 2025Q1

REPORT INFORMATION
  Report Type: Report from Study
  Country: JP (occurrence: JP)
  Receive Date: 20250322
  Receipt Date: 20250322
  Transmission Date: 20250408
  Serious: Yes (Other)
  Sender: ROCHE
  Company Number: JP-CHUGAI-2025008404

PATIENT
  Weight: 48.4 kg

DRUGS (5)
  1. RITUXIMAB [Suspect]
     Active Substance: RITUXIMAB
     Indication: Diffuse large B-cell lymphoma
     Dosage: 530 MILLIGRAM, QD
     Route: 042
     Dates: start: 20241029, end: 20241029
  2. POLIVY [Suspect]
     Active Substance: POLATUZUMAB VEDOTIN-PIIQ
     Indication: Diffuse large B-cell lymphoma
     Dosage: 87 MILLIGRAM, QD
     Route: 042
     Dates: start: 20241029, end: 20241029
  3. METHYLPREDNISOLONE SODIUM SUCCINATE [Suspect]
     Active Substance: METHYLPREDNISOLONE SODIUM SUCCINATE
     Indication: Diffuse large B-cell lymphoma
     Dosage: 275 MILLIGRAM, QD
     Route: 042
     Dates: start: 20241029, end: 20241029
  4. CYCLOPHOSPHAMIDE [Suspect]
     Active Substance: CYCLOPHOSPHAMIDE
     Indication: Diffuse large B-cell lymphoma
     Dosage: 1050 MILLIGRAM, QD
     Route: 042
     Dates: start: 20241029, end: 20241029
  5. DOXORUBICIN HYDROCHLORIDE [Suspect]
     Active Substance: DOXORUBICIN HYDROCHLORIDE
     Indication: Diffuse large B-cell lymphoma
     Dosage: 70 MILLIGRAM, QD
     Route: 042
     Dates: start: 20241029, end: 20241029

REACTIONS (1)
  - Urinary tract infection [Unknown]
